FAERS Safety Report 25638647 (Version 1)
Quarter: 2025Q3

REPORT INFORMATION
  Report Type: Report from Study
  Country: AR (occurrence: AR)
  Receive Date: 20250804
  Receipt Date: 20250804
  Transmission Date: 20251021
  Serious: Yes (Hospitalization, Other)
  Sender: AMGEN
  Company Number: AR-AMGEN-ARGSL2025054265

PATIENT
  Age: 77 Year
  Sex: Male

DRUGS (2)
  1. VECTIBIX [Suspect]
     Active Substance: PANITUMUMAB
     Indication: Colorectal cancer
     Route: 065
     Dates: start: 20250227
  2. VECTIBIX [Suspect]
     Active Substance: PANITUMUMAB
     Route: 065
     Dates: start: 2025

REACTIONS (13)
  - Colorectal cancer [Unknown]
  - Anaemia [Unknown]
  - Full blood count decreased [Unknown]
  - Dizziness [Unknown]
  - Vision blurred [Unknown]
  - Weight gain poor [Unknown]
  - Malaise [Unknown]
  - Blood pressure decreased [Unknown]
  - Diarrhoea [Unknown]
  - Asthenia [Unknown]
  - Rash [Unknown]
  - Fatigue [Unknown]
  - General physical health deterioration [Unknown]

NARRATIVE: CASE EVENT DATE: 20250101
